FAERS Safety Report 16169502 (Version 1)
Quarter: 2019Q2

REPORT INFORMATION
  Report Type: Spontaneous
  Country: JP (occurrence: JP)
  Receive Date: 20190408
  Receipt Date: 20190408
  Transmission Date: 20190711
  Serious: Yes (Congenital Anomaly, Other)
  Sender: FDA-Public Use
  Company Number: JP-MYLANLABS-2019M1030673

PATIENT
  Sex: Male
  Weight: 2.03 kg

DRUGS (22)
  1. ACICLOVIR [Suspect]
     Active Substance: ACYCLOVIR
     Indication: VARICELLA ZOSTER VIRUS INFECTION
     Route: 064
  2. PREDNISOLONE. [Suspect]
     Active Substance: PREDNISOLONE
     Indication: VARICELLA ZOSTER VIRUS INFECTION
     Dosage: 25 MILLIGRAM
     Route: 064
  3. PREDNISOLONE. [Suspect]
     Active Substance: PREDNISOLONE
     Dosage: 10 MILLIGRAM
     Route: 064
  4. PREDNISOLONE SODIUM SUCCINATE [Suspect]
     Active Substance: PREDNISOLONE SODIUM SUCCINATE
     Indication: NECROTISING RETINITIS
     Dosage: 50 MILLIGRAM
     Route: 064
  5. BETAMETHASONE SODIUM PHOSPHATE [Concomitant]
     Active Substance: BETAMETHASONE SODIUM PHOSPHATE
     Dosage: UNK
  6. ASPIRIN                            /00002701/ [Concomitant]
     Active Substance: ASPIRIN
  7. ACICLOVIR MYLAN [Suspect]
     Active Substance: ACYCLOVIR
     Indication: NECROTISING RETINITIS
     Dosage: 1500 MILLIGRAM, QD
     Route: 064
  8. ACICLOVIR MYLAN [Suspect]
     Active Substance: ACYCLOVIR
     Indication: VARICELLA ZOSTER VIRUS INFECTION
  9. PREDNISOLONE. [Suspect]
     Active Substance: PREDNISOLONE
     Indication: NECROTISING RETINITIS
     Dosage: 12.5 MILLIGRAM
     Route: 064
  10. PREDNISOLONE. [Suspect]
     Active Substance: PREDNISOLONE
     Dosage: 15 MILLIGRAM, QD
     Route: 064
  11. ACETAMINOPHEN. [Concomitant]
     Active Substance: ACETAMINOPHEN
     Dosage: UNK
  12. PREDNISOLONE. [Suspect]
     Active Substance: PREDNISOLONE
     Dosage: 20 MILLIGRAM, QD
     Route: 064
  13. METHYLPREDNISOLONE SODIUM SUCCINATE. [Suspect]
     Active Substance: METHYLPREDNISOLONE SODIUM SUCCINATE
     Indication: VARICELLA ZOSTER VIRUS INFECTION
     Dosage: 50 MILLIGRAM, QD
     Route: 064
  14. METHYLPREDNISOLONE SODIUM SUCCINATE. [Suspect]
     Active Substance: METHYLPREDNISOLONE SODIUM SUCCINATE
     Indication: NECROTISING RETINITIS
  15. SODIUM HYALURONATE [Concomitant]
     Active Substance: HYALURONATE SODIUM
     Dosage: UNK
  16. PREDNISOLONE SODIUM SUCCINATE [Suspect]
     Active Substance: PREDNISOLONE SODIUM SUCCINATE
     Dosage: 37.5 MILLIGRAM
     Route: 064
  17. CEFMENOXIME HYDROCHLORIDE [Concomitant]
     Active Substance: CEFMENOXIME HYDROCHLORIDE
     Dosage: UNK
  18. ACICLOVIR MYLAN [Suspect]
     Active Substance: ACYCLOVIR
     Indication: VARICELLA ZOSTER VIRUS INFECTION
     Dosage: 1000 MILLIGRAM, QD
     Route: 064
  19. ACICLOVIR [Suspect]
     Active Substance: ACYCLOVIR
     Indication: NECROTISING RETINITIS
  20. PREDNISOLONE SODIUM SUCCINATE [Suspect]
     Active Substance: PREDNISOLONE SODIUM SUCCINATE
     Indication: VARICELLA ZOSTER VIRUS INFECTION
     Dosage: 60 MILLIGRAM
     Route: 064
  21. FAMOTIDINE. [Concomitant]
     Active Substance: FAMOTIDINE
     Dosage: UNK
  22. ACICLOVIR MYLAN [Suspect]
     Active Substance: ACYCLOVIR
     Indication: NECROTISING RETINITIS
     Dosage: 1000 MILLIGRAM, TID
     Route: 064

REACTIONS (4)
  - Jaundice neonatal [Unknown]
  - Congenital umbilical hernia [Unknown]
  - Foetal growth restriction [Unknown]
  - Foetal exposure during pregnancy [Recovered/Resolved]
